FAERS Safety Report 10993456 (Version 1)
Quarter: 2015Q2

REPORT INFORMATION
  Report Type: Spontaneous
  Country: US (occurrence: None)
  Receive Date: 20150406
  Receipt Date: 20150406
  Transmission Date: 20150821
  Serious: No
  Sender: FDA-Public Use
  Company Number: None

PATIENT
  Age: 62 Year
  Sex: Male

DRUGS (1)
  1. ZYTIGA [Suspect]
     Active Substance: ABIRATERONE ACETATE
     Dates: start: 20150105

REACTIONS (4)
  - Fatigue [None]
  - Blood pressure decreased [None]
  - Pain [None]
  - Unable to afford prescribed medication [None]

NARRATIVE: CASE EVENT DATE: 20150401
